FAERS Safety Report 8219509-8 (Version None)
Quarter: 2012Q1

REPORT INFORMATION
  Report Type: 
  Country: None (occurrence: None)
  Receive Date: 20120319
  Receipt Date: 20120313
  Transmission Date: 20120608
  Serious: No
  Sender: FDA-Public Use
  Company Number: US-PFIZER INC-2012066661

PATIENT
  Sex: Female
  Weight: 61.68 kg

DRUGS (2)
  1. ASPIRIN [Concomitant]
     Dosage: 81 MG, UNK
  2. LIPITOR [Suspect]
     Indication: BLOOD CHOLESTEROL INCREASED
     Dosage: 20 MG, 1X/DAY
     Route: 048

REACTIONS (6)
  - ABDOMINAL DISTENSION [None]
  - ASTHENIA [None]
  - SWELLING [None]
  - PAIN [None]
  - LETHARGY [None]
  - DEPRESSION [None]
